FAERS Safety Report 20420803 (Version 1)
Quarter: 2022Q1

REPORT INFORMATION
  Report Type: Spontaneous
  Country: DE (occurrence: DE)
  Receive Date: 20220203
  Receipt Date: 20220203
  Transmission Date: 20220423
  Serious: Yes (Other)
  Sender: FDA-Public Use
  Company Number: DE-BESINS-2021-16351

PATIENT
  Age: 49 Year
  Sex: Female
  Weight: 65 kg

DRUGS (3)
  1. ESTRADIOL [Suspect]
     Active Substance: ESTRADIOL
     Indication: Product used for unknown indication
     Dosage: 2-3 STROKES
     Route: 065
     Dates: start: 2021
  2. PROGESTERONE [Suspect]
     Active Substance: PROGESTERONE
     Indication: Product used for unknown indication
     Dosage: 100MG
     Route: 065
     Dates: start: 2021
  3. PROGESTERONE [Suspect]
     Active Substance: PROGESTERONE
     Dosage: 200MG-300MG PROGESTERONE
     Route: 065
     Dates: start: 2021, end: 2021

REACTIONS (3)
  - Postmenopausal haemorrhage [Unknown]
  - Headache [Unknown]
  - Fluid retention [Unknown]

NARRATIVE: CASE EVENT DATE: 20210101
